FAERS Safety Report 20953541 (Version 1)
Quarter: 2022Q2

REPORT INFORMATION
  Report Type: Spontaneous
  Country: None (occurrence: US)
  Receive Date: 20220613
  Receipt Date: 20220613
  Transmission Date: 20220721
  Serious: No
  Sender: FDA-Public Use
  Company Number: US-Mission Pharmacal Company-2129812

PATIENT
  Age: 71 Year
  Sex: Male

DRUGS (14)
  1. THIOLA EC [Suspect]
     Active Substance: TIOPRONIN
     Indication: Cystinuria
     Route: 048
     Dates: start: 20220507
  2. ASPIRIN [Concomitant]
     Active Substance: ASPIRIN
  3. CAPTOPRIL [Concomitant]
     Active Substance: CAPTOPRIL
  4. TRULICITY [Concomitant]
     Active Substance: DULAGLUTIDE
  5. FLAXSEED [Concomitant]
     Active Substance: FLAX SEED
  6. PROZAC [Concomitant]
     Active Substance: FLUOXETINE HYDROCHLORIDE
  7. GLUCOTROL [Concomitant]
     Active Substance: GLIPIZIDE
  8. METFORMIN HYDROCHLORIDE [Concomitant]
     Active Substance: METFORMIN HYDROCHLORIDE
  9. SILDENAFIL CITRATE [Concomitant]
     Active Substance: SILDENAFIL CITRATE
  10. DEPO-TESTOSTERONE [Concomitant]
     Active Substance: TESTOSTERONE CYPIONATE
  11. ARMOUR THYROID [Concomitant]
     Active Substance: THYROID, PORCINE
  12. Coenzyme Q-10 [Concomitant]
  13. VITAMIN A [Concomitant]
     Active Substance: VITAMIN A
  14. VITAMIN E [Concomitant]
     Active Substance: .ALPHA.-TOCOPHEROL

REACTIONS (1)
  - Taste disorder [Not Recovered/Not Resolved]
